FAERS Safety Report 8089069-3 (Version None)
Quarter: 2012Q1

REPORT INFORMATION
  Report Type: 
  Country: None (occurrence: None)
  Receive Date: 20120128
  Receipt Date: 20110616
  Transmission Date: 20120608
  Serious: Yes (Hospitalization, Other)
  Sender: FDA-Public Use
  Company Number: US-ABBOTT-11P-163-0716212-00

PATIENT
  Sex: Male
  Weight: 83.99 kg

DRUGS (8)
  1. NASONEX [Concomitant]
     Indication: SEASONAL ALLERGY
  2. HUMIRA [Suspect]
     Indication: CROHN'S DISEASE
     Dates: end: 20110501
  3. HUMIRA [Suspect]
     Indication: COLITIS ULCERATIVE
     Dosage: 160MG LOADING DOSE
     Route: 058
     Dates: start: 20101230, end: 20101230
  4. IMURAN [Concomitant]
     Indication: PRODUCT USED FOR UNKNOWN INDICATION
     Dates: end: 20110101
  5. METHOTREXATE [Concomitant]
     Indication: PRODUCT USED FOR UNKNOWN INDICATION
     Route: 050
  6. PREDNISONE TAB [Concomitant]
     Indication: PRODUCT USED FOR UNKNOWN INDICATION
  7. CLARITHROMYCIN [Concomitant]
     Indication: NOCARDIOSIS
     Route: 048
  8. MULTI-VITAMIN [Concomitant]
     Indication: VITAMIN SUPPLEMENTATION

REACTIONS (6)
  - NASOPHARYNGITIS [None]
  - RHINORRHOEA [None]
  - CROHN'S DISEASE [None]
  - OROPHARYNGEAL PAIN [None]
  - DRUG INEFFECTIVE [None]
  - HEADACHE [None]
